FAERS Safety Report 21651559 (Version 1)
Quarter: 2022Q4

REPORT INFORMATION
  Report Type: Spontaneous
  Country: US (occurrence: None)
  Receive Date: 20221127
  Receipt Date: 20221127
  Transmission Date: 20230112
  Serious: No
  Sender: FDA-Public Use
  Company Number: None

PATIENT
  Age: 29 Year
  Sex: Female

DRUGS (1)
  1. NEXPLANON [Suspect]
     Active Substance: ETONOGESTREL
     Dates: start: 20221107

REACTIONS (4)
  - Implant site reaction [None]
  - Erythema [None]
  - Implant site pruritus [None]
  - Pain [None]

NARRATIVE: CASE EVENT DATE: 20221111
